FAERS Safety Report 5023511-7 (Version None)
Quarter: 2006Q2

REPORT INFORMATION
  Report Type: 
  Country: None (occurrence: None)
  Receive Date: 20060612
  Receipt Date: 20060530
  Transmission Date: 20061013
  Serious: Yes (Death, Hospitalization)
  Sender: FDA-Public Use
  Company Number: US-GLAXOSMITHKLINE-A0607309A

PATIENT
  Age: 69 Year
  Sex: Male

DRUGS (2)
  1. TOPOTECAN [Suspect]
     Dosage: 6.1MG CYCLIC
     Route: 042
     Dates: start: 20060315
  2. TAXOTERE [Suspect]
     Dosage: 61MG CYCLIC
     Route: 042
     Dates: start: 20060315

REACTIONS (6)
  - CARDIAC FAILURE CONGESTIVE [None]
  - DYSPNOEA EXACERBATED [None]
  - FATIGUE [None]
  - MALIGNANT NEOPLASM PROGRESSION [None]
  - OEDEMA [None]
  - PNEUMONIA [None]
